FAERS Safety Report 8826666 (Version 1)
Quarter: 2012Q4

REPORT INFORMATION
  Report Type: 
  Country: US (occurrence: US)
  Receive Date: 20121005
  Receipt Date: 20121005
  Transmission Date: 20130627
  Serious: Yes (Hospitalization, Congenital Anomaly)
  Sender: FDA-Public Use
  Company Number: US-GLAXOSMITHKLINE-A0669269A

PATIENT
  Age: 0 Year
  Sex: Male
  Weight: 4.1 kg

DRUGS (4)
  1. PAROXETINE [Suspect]
     Indication: ANXIETY
     Dosage: 40MG Per day
     Route: 064
     Dates: start: 200211, end: 200306
  2. PRENATAL VITAMINS [Concomitant]
     Route: 064
     Dates: start: 200303, end: 200312
  3. NAPROSYN [Concomitant]
     Route: 064
     Dates: start: 20030326
  4. FLEXERIL [Concomitant]
     Route: 064
     Dates: start: 20030326

REACTIONS (25)
  - Congenital tricuspid valve atresia [Unknown]
  - Transposition of the great vessels [Unknown]
  - Coarctation of the aorta [Unknown]
  - Dandy-Walker syndrome [Unknown]
  - Cardiac murmur [Unknown]
  - Bradycardia [Unknown]
  - Conduction disorder [Unknown]
  - Aorta hypoplasia [Unknown]
  - Dilatation atrial [Unknown]
  - Aortic valve incompetence [Unknown]
  - Heart valve incompetence [Unknown]
  - Ventricular septal defect [Unknown]
  - Mitral valve incompetence [Unknown]
  - Dextrocardia [Unknown]
  - Left ventricular hypertrophy [Unknown]
  - Mitral valve disease [Unknown]
  - Patent ductus arteriosus [Unknown]
  - Ventricular hypoplasia [Unknown]
  - Stridor [Unknown]
  - Hypoxia [Unknown]
  - Cyanosis [Unknown]
  - Pneumothorax [Unknown]
  - Cardiomegaly [Unknown]
  - Foetal macrosomia [Unknown]
  - Foetal exposure during pregnancy [Unknown]
